FAERS Safety Report 8912432 (Version 2)
Quarter: 2013Q2

REPORT INFORMATION
  Report Type: Report from Study
  Country: US (occurrence: US)
  Receive Date: 20121115
  Receipt Date: 20130523
  Transmission Date: 20140414
  Serious: Yes (Hospitalization)
  Sender: FDA-Public Use
  Company Number: US-ABBOTT-12P-163-1006411-00

PATIENT
  Age: 17 Year
  Sex: Female
  Weight: 60 kg

DRUGS (9)
  1. HUMIRA [Suspect]
     Indication: JUVENILE IDIOPATHIC ARTHRITIS
     Route: 058
     Dates: start: 20100923
  2. HUMIRA [Suspect]
     Route: 058
     Dates: start: 20110407
  3. HUMIRA [Suspect]
     Route: 058
     Dates: start: 20120503
  4. TYLENOL [Concomitant]
     Indication: PAIN
     Dates: start: 201103
  5. TYLENOL [Concomitant]
     Indication: SWELLING
  6. ALEVE [Concomitant]
     Indication: PAIN
     Dates: start: 201106
  7. ALEVE [Concomitant]
     Indication: SWELLING
  8. FLUOXETINE [Concomitant]
     Indication: ANXIETY
     Dates: start: 201205, end: 201206
  9. FLUOXETINE [Concomitant]
     Indication: DEPRESSION
     Dates: start: 201206, end: 201209

REACTIONS (1)
  - Anxiety [Recovered/Resolved]
